FAERS Safety Report 10533308 (Version 1)
Quarter: 2014Q4

REPORT INFORMATION
  Report Type: Spontaneous
  Country: US (occurrence: US)
  Receive Date: 20141022
  Receipt Date: 20141022
  Transmission Date: 20150529
  Serious: Yes (Hospitalization)
  Sender: FDA-Public Use
  Company Number: US-JNJFOC-20141008641

PATIENT
  Age: 19 Year
  Sex: Female
  Weight: 56.7 kg

DRUGS (27)
  1. RIBOFLAVIN [Concomitant]
     Active Substance: RIBOFLAVIN
     Indication: VITAMIN SUPPLEMENTATION
     Route: 065
  2. THIAMINE [Concomitant]
     Active Substance: THIAMINE
     Indication: HEAD INJURY
     Route: 065
  3. UBIQUINOL [Concomitant]
     Indication: HEAD INJURY
     Route: 065
  4. UBIQUINOL [Concomitant]
     Indication: VITAMIN SUPPLEMENTATION
     Route: 065
  5. NORTRIPTYLINE [Concomitant]
     Active Substance: NORTRIPTYLINE
     Indication: BRAIN INJURY
     Route: 065
  6. RIBOFLAVIN [Concomitant]
     Active Substance: RIBOFLAVIN
     Indication: HEAD INJURY
     Route: 065
  7. UBIQUINOL [Concomitant]
     Indication: VITAMIN SUPPLEMENTATION
     Route: 065
  8. VITAMIN D2 [Concomitant]
     Active Substance: ERGOCALCIFEROL
     Indication: VITAMIN SUPPLEMENTATION
     Route: 065
  9. AMINO ACIDS [Concomitant]
     Active Substance: AMINO ACIDS
     Indication: VITAMIN SUPPLEMENTATION
     Route: 065
  10. MAGNESIUM OXIDE. [Concomitant]
     Active Substance: MAGNESIUM OXIDE
     Indication: HEAD INJURY
     Route: 065
  11. MAGNESIUM OXIDE. [Concomitant]
     Active Substance: MAGNESIUM OXIDE
     Indication: VITAMIN SUPPLEMENTATION
     Route: 065
  12. SUMATRIPTAN. [Concomitant]
     Active Substance: SUMATRIPTAN
     Indication: HEAD INJURY
     Route: 065
  13. TORADOL [Concomitant]
     Active Substance: KETOROLAC TROMETHAMINE
     Indication: HEAD INJURY
     Route: 065
  14. THIAMINE [Concomitant]
     Active Substance: THIAMINE
     Indication: VITAMIN SUPPLEMENTATION
     Route: 065
  15. AMINO ACIDS [Concomitant]
     Active Substance: AMINO ACIDS
     Indication: HEAD INJURY
     Route: 065
  16. CHILDRENS BENADRYL ALLERGY [Suspect]
     Active Substance: DIPHENHYDRAMINE HYDROCHLORIDE
     Indication: FOOD ALLERGY
     Dosage: 4 TABLESPOONS
     Route: 048
     Dates: start: 201307
  17. UBIQUINOL [Concomitant]
     Indication: HEAD INJURY
     Route: 065
  18. TURMERIC [Concomitant]
     Active Substance: TURMERIC
     Indication: HEAD INJURY
     Route: 065
  19. TURMERIC [Concomitant]
     Active Substance: TURMERIC
     Indication: VITAMIN SUPPLEMENTATION
     Route: 065
  20. SUMATRIPTAN. [Concomitant]
     Active Substance: SUMATRIPTAN
     Indication: BRAIN INJURY
     Route: 065
  21. TORADOL [Concomitant]
     Active Substance: KETOROLAC TROMETHAMINE
     Indication: BRAIN INJURY
     Route: 065
  22. NORTRIPTYLINE [Concomitant]
     Active Substance: NORTRIPTYLINE
     Indication: HEAD INJURY
     Route: 065
  23. VITAMIN D [Concomitant]
     Active Substance: CHOLECALCIFEROL
     Indication: VITAMIN SUPPLEMENTATION
     Route: 065
  24. OMEGA 3 [Concomitant]
     Active Substance: OMEGA-3 FATTY ACIDS
     Indication: HEAD INJURY
     Route: 065
  25. OMEGA 3 [Concomitant]
     Active Substance: OMEGA-3 FATTY ACIDS
     Indication: VITAMIN SUPPLEMENTATION
     Route: 065
  26. VITAMIN D [Concomitant]
     Active Substance: CHOLECALCIFEROL
     Indication: HEAD INJURY
     Route: 065
  27. VITAMIN D2 [Concomitant]
     Active Substance: ERGOCALCIFEROL
     Indication: HEAD INJURY
     Route: 065

REACTIONS (3)
  - Product use issue [Unknown]
  - Palpitations [Recovered/Resolved]
  - Drug ineffective for unapproved indication [Unknown]

NARRATIVE: CASE EVENT DATE: 201307
